FAERS Safety Report 9420882 (Version 2)
Quarter: 2017Q2

REPORT INFORMATION
  Report Type: Spontaneous
  Country: DE (occurrence: DE)
  Receive Date: 20130723
  Receipt Date: 20170512
  Transmission Date: 20170830
  Serious: Yes (Hospitalization)
  Sender: FDA-Public Use
  Company Number: 7223736

PATIENT
  Sex: Female

DRUGS (1)
  1. NOVOTHYROX [Suspect]
     Active Substance: LEVOTHYROXINE SODIUM
     Indication: HYPOTHYROIDISM
     Route: 048
     Dates: start: 2011, end: 20130624

REACTIONS (10)
  - Palpitations [Recovering/Resolving]
  - Tremor [Recovering/Resolving]
  - Fatigue [Recovering/Resolving]
  - Withdrawal syndrome [Not Recovered/Not Resolved]
  - Hypertension [Recovered/Resolved]
  - Agitation [Recovering/Resolving]
  - Diarrhoea [Recovering/Resolving]
  - Atrial flutter [Recovering/Resolving]
  - Heart rate increased [Recovered/Resolved]
  - Insomnia [Recovering/Resolving]

NARRATIVE: CASE EVENT DATE: 2013
